FAERS Safety Report 10216977 (Version 1)
Quarter: 2014Q2

REPORT INFORMATION
  Report Type: Spontaneous
  Country: FR (occurrence: FR)
  Receive Date: 20140604
  Receipt Date: 20140604
  Transmission Date: 20141212
  Serious: Yes (Life-Threatening, Hospitalization)
  Sender: FDA-Public Use
  Company Number: FR-GLAXOSMITHKLINE-B0997171A

PATIENT
  Age: 35 Year
  Sex: Female

DRUGS (7)
  1. LAMICTAL [Suspect]
     Indication: SUICIDE ATTEMPT
     Dosage: 2400MG PER DAY
     Route: 048
     Dates: start: 20140420, end: 20140420
  2. LEPONEX [Suspect]
     Indication: SUICIDE ATTEMPT
     Dosage: 3000MG PER DAY
     Route: 048
     Dates: start: 20140420, end: 20140420
  3. ZOLPIDEM [Suspect]
     Indication: SUICIDE ATTEMPT
     Dosage: 20UNIT PER DAY
     Route: 048
     Dates: start: 20140420, end: 20140420
  4. TERALITHE [Suspect]
     Indication: SUICIDE ATTEMPT
     Dosage: 18400MG PER DAY
     Route: 048
     Dates: start: 20140420, end: 20140420
  5. LAMICTAL [Concomitant]
     Dosage: 100MG PER DAY
     Route: 048
  6. TERALITHE [Concomitant]
     Dosage: 1575MG PER DAY
     Route: 048
  7. LEPONEX [Concomitant]
     Dosage: 100MG THREE TIMES PER DAY
     Route: 048

REACTIONS (8)
  - Coma [Recovered/Resolved]
  - Respiratory distress [Recovered/Resolved]
  - Pneumonia aspiration [Recovered/Resolved]
  - Regurgitation [Recovered/Resolved]
  - Increased bronchial secretion [Recovered/Resolved]
  - Respiratory tract congestion [Recovered/Resolved]
  - Pyrexia [Recovered/Resolved]
  - Suicide attempt [Unknown]
